FAERS Safety Report 20209644 (Version 2)
Quarter: 2021Q4

REPORT INFORMATION
  Report Type: Spontaneous
  Country: US (occurrence: US)
  Receive Date: 20211221
  Receipt Date: 20211228
  Transmission Date: 20220303
  Serious: Yes (Hospitalization, Other)
  Sender: FDA-Public Use
  Company Number: US-TAKEDA-2021TUS079054

PATIENT
  Age: 35 Year
  Sex: Male
  Weight: 107 kg

DRUGS (8)
  1. HYQVIA [Suspect]
     Active Substance: HUMAN IMMUNOGLOBULIN G\HYALURONIDASE RECOMBINANT HUMAN
     Indication: Immunodeficiency common variable
     Dosage: UNK, MONTHLY
     Route: 042
  2. HYQVIA [Suspect]
     Active Substance: HUMAN IMMUNOGLOBULIN G\HYALURONIDASE RECOMBINANT HUMAN
     Dosage: 12.5 GRAM
     Route: 058
     Dates: start: 20211110, end: 20211110
  3. HYQVIA [Suspect]
     Active Substance: HUMAN IMMUNOGLOBULIN G\HYALURONIDASE RECOMBINANT HUMAN
     Dosage: 12.5 GRAM
     Route: 058
     Dates: start: 20211110, end: 20211110
  4. WARFARIN [Concomitant]
     Active Substance: WARFARIN
  5. PREDNISONE [Concomitant]
     Active Substance: PREDNISONE
     Dosage: 20 GRAM, QD
  6. METOPROLOL [Concomitant]
     Active Substance: METOPROLOL
  7. SINGULAIR [Concomitant]
     Active Substance: MONTELUKAST SODIUM
  8. DULERA [Concomitant]
     Active Substance: FORMOTEROL FUMARATE DIHYDRATE\MOMETASONE FUROATE

REACTIONS (1)
  - Cerebrovascular accident [Recovering/Resolving]

NARRATIVE: CASE EVENT DATE: 20211116
